FAERS Safety Report 12893496 (Version 1)
Quarter: 2016Q4

REPORT INFORMATION
  Report Type: Spontaneous
  Country: FR (occurrence: FR)
  Receive Date: 20161028
  Receipt Date: 20161028
  Transmission Date: 20170207
  Serious: Yes (Hospitalization)
  Sender: FDA-Public Use
  Company Number: FR-TEVA-706561ROM

PATIENT
  Age: 86 Year
  Sex: Female

DRUGS (3)
  1. SINEMET LP 100 MG/25 MG [Concomitant]
     Dosage: 1 DF AT 11:00 PM LEVODOPA 100MG AND CARBIDOPA 25MG
  2. AZILECT [Suspect]
     Active Substance: RASAGILINE MESYLATE
     Dosage: 1 DOSAGE FORMS DAILY;
     Route: 048
     Dates: start: 2012, end: 20160919
  3. SIMENET 100 MG /10 MG [Concomitant]
     Dosage: 6 DOSAGE FORMS DAILY; LEVODOPA 100 MG AND CARBIDOPA 10 MG

REACTIONS (1)
  - Ischaemic stroke [Recovered/Resolved with Sequelae]

NARRATIVE: CASE EVENT DATE: 20160919
